FAERS Safety Report 16782976 (Version 4)
Quarter: 2020Q2

REPORT INFORMATION
  Report Type: Report from Study
  Country: US (occurrence: US)
  Receive Date: 20190906
  Receipt Date: 20200417
  Transmission Date: 20200713
  Serious: Yes (Death, Hospitalization, Other)
  Sender: FDA-Public Use
  Company Number: US-TAKEDA-2019TUS051035

PATIENT
  Sex: Male

DRUGS (2)
  1. PONATINIB [Suspect]
     Active Substance: PONATINIB
     Dosage: 30 MILLIGRAM, QD
     Route: 048
  2. PONATINIB [Suspect]
     Active Substance: PONATINIB
     Indication: CHRONIC MYELOID LEUKAEMIA
     Dosage: 45 MILLIGRAM, QD
     Route: 048
     Dates: start: 20190813

REACTIONS (12)
  - Death [Fatal]
  - Vision blurred [Unknown]
  - Eye discharge [Unknown]
  - Nasopharyngitis [Unknown]
  - Graft versus host disease in liver [Unknown]
  - Blood pressure decreased [Unknown]
  - Platelet count decreased [Unknown]
  - Graft versus host disease in gastrointestinal tract [Unknown]
  - Chronic myeloid leukaemia [Unknown]
  - Liver disorder [Unknown]
  - Liver iron concentration increased [Unknown]
  - Visual impairment [Unknown]
